FAERS Safety Report 4478832-3 (Version None)
Quarter: 2004Q3

REPORT INFORMATION
  Report Type: 
  Country: None (occurrence: None)
  Receive Date: 20040923
  Receipt Date: 20040818
  Transmission Date: 20050211
  Serious: Yes (Other)
  Sender: FDA-Public Use
  Company Number: USA040773192

PATIENT
  Sex: Female
  Weight: 72 kg

DRUGS (10)
  1. EVISTA [Suspect]
     Indication: BONE DISORDER
  2. FORTEO [Suspect]
     Indication: FRACTURE
     Dosage: 20 UG/L OTHER
     Route: 050
     Dates: start: 20040611
  3. LOTENSIN [Concomitant]
  4. TUMS (CALCIUM CARBONATE) [Concomitant]
  5. LIPITOR [Concomitant]
  6. ACTONEL [Concomitant]
  7. VIOXX [Concomitant]
  8. PLAVIX [Concomitant]
  9. VITAMIN E [Concomitant]
  10. ASPIRIN [Concomitant]

REACTIONS (23)
  - APHASIA [None]
  - BACK PAIN [None]
  - BALANCE DISORDER [None]
  - BLOOD PRESSURE DECREASED [None]
  - BLOOD PRESSURE INCREASED [None]
  - BLOOD SODIUM DECREASED [None]
  - BODY HEIGHT DECREASED [None]
  - CEREBROVASCULAR ACCIDENT [None]
  - COMPRESSION FRACTURE [None]
  - DIZZINESS [None]
  - FATIGUE [None]
  - FEELING ABNORMAL [None]
  - GAIT DISTURBANCE [None]
  - GASTRIC DISORDER [None]
  - INJECTION SITE HAEMORRHAGE [None]
  - MOBILITY DECREASED [None]
  - NAUSEA [None]
  - PAIN [None]
  - SPINAL DISORDER [None]
  - SPINAL FRACTURE [None]
  - THORACIC VERTEBRAL FRACTURE [None]
  - TREMOR [None]
  - WEIGHT INCREASED [None]
